FAERS Safety Report 9858304 (Version 2)
Quarter: 2014Q1

REPORT INFORMATION
  Report Type: Spontaneous
  Country: US (occurrence: US)
  Receive Date: 20140131
  Receipt Date: 20140217
  Transmission Date: 20141002
  Serious: Yes (Other)
  Sender: FDA-Public Use
  Company Number: US-BEH-2014040300

PATIENT
  Age: 3 Year
  Sex: Female

DRUGS (6)
  1. INTRAVENOUS IMMUNOGLOBULIN [Suspect]
     Indication: IMMUNE THROMBOCYTOPENIC PURPURA
     Dosage: INFUSED OVER 6 HOURS, SECOND DOSE ADMINISTERED APPROXIMATELY 24 H AFTER INITIAL IVIG DOSE
     Route: 042
  2. DIPHENHYDRAMINE [Concomitant]
     Indication: PREMEDICATION
  3. METHYLPREDNISOLONE [Concomitant]
     Dosage: 0.5 MG/KG
  4. PHENYTOIN [Concomitant]
     Route: 042
  5. PHENOBARBITAL [Concomitant]
     Route: 040
  6. DEXAMETHASONE [Concomitant]
     Indication: STRIDOR
     Dosage: FOR A TOTAL OF FOUR DOSES
     Route: 042

REACTIONS (12)
  - Cerebral infarction [Recovered/Resolved]
  - Ischaemic cerebral infarction [Recovered/Resolved]
  - Haemorrhage intracranial [Recovered/Resolved]
  - Convulsion [Unknown]
  - Vomiting [Unknown]
  - Somnolence [Unknown]
  - Irritability [Unknown]
  - Disorientation [Unknown]
  - Headache [Unknown]
  - Lethargy [Unknown]
  - Visual tracking test abnormal [Recovered/Resolved]
  - Visual evoked potentials abnormal [Recovered/Resolved]
